FAERS Safety Report 6942985-5 (Version None)
Quarter: 2010Q3

REPORT INFORMATION
  Report Type: 
  Country: None (occurrence: None)
  Receive Date: 20100826
  Receipt Date: 20100816
  Transmission Date: 20110219
  Serious: Yes (Hospitalization, Other)
  Sender: FDA-Public Use
  Company Number: US-CELGENEUS-163-21880-10072412

PATIENT
  Sex: Male

DRUGS (1)
  1. REVLIMID [Suspect]
     Indication: MULTIPLE MYELOMA
     Route: 048
     Dates: start: 20100625

REACTIONS (5)
  - CONVULSION [None]
  - HYPERCALCAEMIA [None]
  - MENTAL STATUS CHANGES [None]
  - PSEUDOMONAL SEPSIS [None]
  - SYNCOPE [None]
